FAERS Safety Report 7546754-7 (Version None)
Quarter: 2011Q2

REPORT INFORMATION
  Report Type: 
  Country: None (occurrence: None)
  Receive Date: 20110614
  Receipt Date: 20110609
  Transmission Date: 20111010
  Serious: Yes (Death)
  Sender: FDA-Public Use
  Company Number: B0725188A

PATIENT
  Sex: Male

DRUGS (5)
  1. REQUIP [Suspect]
     Indication: PARKINSON'S DISEASE
     Dosage: 1UNIT PER DAY
     Route: 048
     Dates: end: 20110417
  2. NEUPRO [Suspect]
     Indication: PARKINSON'S DISEASE
     Dosage: 1PAT PER DAY
     Route: 061
     Dates: start: 20110418, end: 20110420
  3. STALEVO 100 [Suspect]
     Indication: PARKINSON'S DISEASE
     Dosage: 1UNIT PER DAY
     Route: 048
     Dates: start: 20050604, end: 20110420
  4. AZILECT [Suspect]
     Indication: PARKINSON'S DISEASE
     Dosage: 1MG PER DAY
     Route: 048
     Dates: start: 20100717, end: 20110420
  5. SINEMET [Suspect]
     Indication: PARKINSON'S DISEASE
     Dosage: 1UNIT PER DAY
     Route: 048
     Dates: start: 20061228, end: 20110420

REACTIONS (3)
  - CHEST PAIN [None]
  - MALAISE [None]
  - DEATH [None]
